FAERS Safety Report 18077856 (Version 1)
Quarter: 2020Q3

REPORT INFORMATION
  Report Type: Spontaneous
  Country: CN (occurrence: CN)
  Receive Date: 20200728
  Receipt Date: 20200728
  Transmission Date: 20201103
  Serious: Yes (Other)
  Sender: FDA-Public Use
  Company Number: CN-LUPIN PHARMACEUTICALS INC.-2020-03810

PATIENT
  Age: 38 Year
  Sex: Male

DRUGS (15)
  1. AMINOCAPROIC ACID. [Concomitant]
     Active Substance: AMINOCAPROIC ACID
     Indication: HAEMOSTASIS
     Dosage: UNK
     Route: 065
  2. MEROPENEM. [Concomitant]
     Active Substance: MEROPENEM
     Indication: COVID-19
     Dosage: UNK
     Route: 065
  3. RIFAMPICIN [Concomitant]
     Active Substance: RIFAMPIN
     Indication: ACINETOBACTER INFECTION
     Dosage: UNK
     Route: 065
  4. INTERFERON ALFA NOS [Concomitant]
     Active Substance: INTERFERON ALFA-2A OR INTERFERON ALFA-2B
     Indication: COVID-19
     Dosage: UNK
     Route: 065
  5. RIBAVIRIN. [Suspect]
     Active Substance: RIBAVIRIN
     Indication: COVID-19
     Dosage: UNK
     Route: 065
  6. UMIFENOVIR. [Concomitant]
     Active Substance: UMIFENOVIR
     Indication: COVID-19
     Dosage: UNK
     Route: 065
  7. MANNITOL. [Concomitant]
     Active Substance: MANNITOL
     Indication: DEHYDRATION
     Dosage: UNK
     Route: 065
  8. VORICONAZOLE. [Concomitant]
     Active Substance: VORICONAZOLE
     Indication: FUNGAL INFECTION
     Dosage: UNK
     Route: 065
  9. FLUCLOXACILLIN [Concomitant]
     Active Substance: FLUCLOXACILLIN
     Indication: COVID-19
     Dosage: UNK
     Route: 065
  10. TIGECYCLINE. [Concomitant]
     Active Substance: TIGECYCLINE
     Indication: ACINETOBACTER INFECTION
     Dosage: UNK
     Route: 037
  11. NORADRENALINE (NORPINEPHRINE) [Concomitant]
     Indication: GASTROINTESTINAL HAEMORRHAGE
     Dosage: UNK, NOREPINEPHRINE DILUTION SOLUTION INJECTION
     Route: 065
  12. CEFOPERAZONE + SULBACTAM [Concomitant]
     Active Substance: CEFOPERAZONE SODIUM\SULBACTAM
     Indication: ACINETOBACTER INFECTION
     Dosage: UNK
     Route: 037
  13. OSELTAMIVIR [Suspect]
     Active Substance: OSELTAMIVIR
     Indication: COVID-19
     Dosage: UNK
     Route: 065
  14. MINOCYCLINE [Concomitant]
     Active Substance: MINOCYCLINE HYDROCHLORIDE
     Indication: ACINETOBACTER INFECTION
     Dosage: UNK
     Route: 048
  15. THROMBIN [Concomitant]
     Active Substance: THROMBIN
     Indication: GASTROINTESTINAL HAEMORRHAGE
     Dosage: UNK, LOW?TEMPERATURE THROMBIN SOLUTION INJECTION
     Route: 065

REACTIONS (1)
  - Off label use [Unknown]
